FAERS Safety Report 10979708 (Version 1)
Quarter: 2015Q2

REPORT INFORMATION
  Report Type: Spontaneous
  Country: US (occurrence: US)
  Receive Date: 20150402
  Receipt Date: 20150402
  Transmission Date: 20150821
  Serious: No
  Sender: FDA-Public Use
  Company Number: US-SA-2014SA062026

PATIENT
  Age: 10 Year
  Sex: Male
  Weight: 27 kg

DRUGS (1)
  1. ALLEGRA [Suspect]
     Active Substance: FEXOFENADINE HYDROCHLORIDE
     Indication: HYPERSENSITIVITY
     Route: 065

REACTIONS (4)
  - Extra dose administered [Unknown]
  - Balance disorder [Unknown]
  - Psychomotor hyperactivity [Unknown]
  - Dry mouth [Unknown]
